FAERS Safety Report 5242954-X (Version None)
Quarter: 2007Q1

REPORT INFORMATION
  Report Type: 
  Country: None (occurrence: None)
  Receive Date: 20070215
  Receipt Date: 20070205
  Transmission Date: 20070707
  Serious: Yes (Life-Threatening, Other)
  Sender: FDA-Public Use
  Company Number: 34164

PATIENT
  Age: 59 Year
  Sex: Male

DRUGS (1)
  1. DACARBAZINE [Suspect]

REACTIONS (1)
  - ISCHAEMIC STROKE [None]
